FAERS Safety Report 21660679 (Version 2)
Quarter: 2025Q2

REPORT INFORMATION
  Report Type: Spontaneous
  Country: US (occurrence: US)
  Receive Date: 20221130
  Receipt Date: 20250516
  Transmission Date: 20250716
  Serious: No
  Sender: COHERUS
  Company Number: US-COHERUS BIOSCIENCES, INC - 2022-COH-US000005

PATIENT

DRUGS (1)
  1. UDENYCA [Suspect]
     Active Substance: PEGFILGRASTIM-CBQV
     Indication: Infection prophylaxis
     Route: 058

REACTIONS (4)
  - Needle issue [Not Recovered/Not Resolved]
  - Product leakage [Not Recovered/Not Resolved]
  - Syringe issue [Not Recovered/Not Resolved]
  - Product dose omission issue [Not Recovered/Not Resolved]

NARRATIVE: CASE EVENT DATE: 20220121
